FAERS Safety Report 24835028 (Version 1)
Quarter: 2025Q1

REPORT INFORMATION
  Report Type: Report from Study
  Country: DE (occurrence: DE)
  Receive Date: 20250113
  Receipt Date: 20250113
  Transmission Date: 20250409
  Serious: Yes (Hospitalization, Other)
  Sender: NORDIC PHARMA
  Company Number: DE-MYLANLABS-2022M1084835

PATIENT
  Sex: Female

DRUGS (13)
  1. METHOTREXATE [Suspect]
     Active Substance: METHOTREXATE
     Indication: Rheumatoid arthritis
     Dates: start: 20200302
  2. METHOTREXATE [Suspect]
     Active Substance: METHOTREXATE
     Indication: Rheumatoid arthritis
     Dates: start: 20200511
  3. XELJANZ [Concomitant]
     Active Substance: TOFACITINIB CITRATE
     Indication: Product used for unknown indication
     Dates: start: 202003, end: 202004
  4. ATORVASTATIN [Concomitant]
     Active Substance: ATORVASTATIN
     Indication: Product used for unknown indication
  5. etanercept (ERELZI) [Concomitant]
     Indication: Product used for unknown indication
     Route: 058
     Dates: start: 202307, end: 20230920
  6. prednisone (LODOTRA) [Concomitant]
     Indication: Product used for unknown indication
  7. PANTOPRAZOLE [Concomitant]
     Active Substance: PANTOPRAZOLE
     Indication: Product used for unknown indication
  8. salazosulfapyridine (SULFASALAZINE) [Concomitant]
     Indication: Product used for unknown indication
     Dates: start: 20210419
  9. salazosulfapyridine (SULFASALAZINE) [Concomitant]
     Indication: Product used for unknown indication
     Dates: start: 20211122
  10. salazosulfapyridine (SULFASALAZINE) [Concomitant]
     Indication: Product used for unknown indication
     Dates: start: 20230424
  11. salazosulfapyridine (SULFASALAZINE) [Concomitant]
     Indication: Product used for unknown indication
     Dates: start: 20220328
  12. salazosulfapyridine (SULFASALAZINE) [Concomitant]
     Indication: Product used for unknown indication
     Dates: start: 20220926
  13. salazosulfapyridine (SULFASALAZINE) [Concomitant]
     Indication: Product used for unknown indication
     Dates: start: 20231023

REACTIONS (2)
  - Knee arthroplasty [Recovered/Resolved]
  - Rhabdomyolysis [Recovered/Resolved]

NARRATIVE: CASE EVENT DATE: 20201004
